FAERS Safety Report 21815738 (Version 2)
Quarter: 2023Q1

REPORT INFORMATION
  Report Type: Spontaneous
  Country: CN (occurrence: CN)
  Receive Date: 20230104
  Receipt Date: 20230110
  Transmission Date: 20230417
  Serious: Yes (Other)
  Sender: FDA-Public Use
  Company Number: CN-Accord-294478

PATIENT
  Age: 58 Year
  Sex: Male

DRUGS (6)
  1. OXALIPLATIN [Suspect]
     Active Substance: OXALIPLATIN
     Indication: Neuroendocrine carcinoma
     Dosage: DAY 1, CUMULATIVE DOSE: SEVEN CYCLES
     Dates: start: 20211015
  2. SURUFATINIB [Suspect]
     Active Substance: SURUFATINIB
     Indication: Neuroendocrine carcinoma
     Dosage: EVERY 21 DAYS, CUMULATIVE DOSE: SEVEN CYCLES
     Route: 048
     Dates: start: 20211015
  3. CAMRELIZUMAB [Suspect]
     Active Substance: CAMRELIZUMAB
     Indication: Neuroendocrine carcinoma
     Dosage: DAY 1, CUMULATIVE DOSE: SEVEN CYCLES
     Dates: start: 20211015
  4. METFORMIN [Concomitant]
     Active Substance: METFORMIN HYDROCHLORIDE
     Indication: Type 2 diabetes mellitus
  5. GLYBURIDE [Concomitant]
     Active Substance: GLYBURIDE
     Indication: Type 2 diabetes mellitus
     Dosage: 1 DOSAGE FORM
  6. PIOGLITAZONE [Concomitant]
     Active Substance: PIOGLITAZONE
     Indication: Type 2 diabetes mellitus

REACTIONS (5)
  - Hypoaesthesia [Unknown]
  - Hypertension [Unknown]
  - Proteinuria [Unknown]
  - Haematuria [Unknown]
  - Hyperthyroidism [Unknown]
